FAERS Safety Report 26034286 (Version 1)
Quarter: 2025Q4

REPORT INFORMATION
  Report Type: Spontaneous
  Country: US (occurrence: None)
  Receive Date: 20251111
  Receipt Date: 20251111
  Transmission Date: 20260118
  Serious: Yes (Death)
  Sender: FDA-CTU
  Company Number: None

PATIENT
  Age: 32 Year
  Sex: Male
  Weight: 54.25 kg

DRUGS (4)
  1. BIKTARVY [Suspect]
     Active Substance: BICTEGRAVIR SODIUM\EMTRICITABINE\TENOFOVIR ALAFENAMIDE FUMARATE
     Indication: HIV infection
     Dosage: ONE TABLET DAILY ORAL
     Route: 048
     Dates: start: 20250424, end: 20251027
  2. ACYCLOVIR [Concomitant]
     Active Substance: ACYCLOVIR
  3. MIDODRINE [Concomitant]
     Active Substance: MIDODRINE
  4. FLUCONAZOLE [Concomitant]
     Active Substance: FLUCONAZOLE

REACTIONS (1)
  - Colon cancer [None]

NARRATIVE: CASE EVENT DATE: 20251027
